FAERS Safety Report 10430388 (Version 1)
Quarter: 2014Q3

REPORT INFORMATION
  Report Type: Spontaneous
  Country: US (occurrence: None)
  Receive Date: 20140903
  Receipt Date: 20140903
  Transmission Date: 20150326
  Serious: Yes (Hospitalization)
  Sender: FDA-Public Use
  Company Number: None

PATIENT
  Age: 86 Year
  Sex: Male
  Weight: 76 kg

DRUGS (9)
  1. FISH OIL [Concomitant]
     Active Substance: FISH OIL
  2. OMPERAZOLE [Concomitant]
     Active Substance: OMEPRAZOLE
  3. KCL [Concomitant]
     Active Substance: POTASSIUM CHLORIDE
  4. ALLOPURINOL. [Concomitant]
     Active Substance: ALLOPURINOL
  5. FUROSEMIDE. [Concomitant]
     Active Substance: FUROSEMIDE
  6. WARFARIN 5 MG [Suspect]
     Active Substance: WARFARIN
     Indication: ATRIAL FLUTTER
     Route: 048
     Dates: start: 20140814, end: 20140902
  7. MG OXIDE [Concomitant]
  8. LISINOPRIL. [Concomitant]
     Active Substance: LISINOPRIL
  9. ASIPRIN [Concomitant]

REACTIONS (2)
  - International normalised ratio increased [None]
  - Gastrointestinal haemorrhage [None]

NARRATIVE: CASE EVENT DATE: 20140902
